FAERS Safety Report 24196821 (Version 1)
Quarter: 2024Q3

REPORT INFORMATION
  Report Type: Report from Study
  Country: TR (occurrence: TR)
  Receive Date: 20240810
  Receipt Date: 20240810
  Transmission Date: 20241017
  Serious: Yes (Death, Hospitalization)
  Sender: ABBVIE
  Company Number: TR-ABBVIE-5874825

PATIENT
  Sex: Female

DRUGS (2)
  1. CARBIDOPA\LEVODOPA [Suspect]
     Active Substance: CARBIDOPA\LEVODOPA
     Indication: Parkinson^s disease
     Dosage: MORNING DOSE (ML): 4.50  CONTINIOUS DOSE (ML): 1.40 EXTRA DOSE (ML): 1.00
     Route: 050
     Dates: start: 20230814
  2. CARBIDOPA\LEVODOPA [Suspect]
     Active Substance: CARBIDOPA\LEVODOPA

REACTIONS (1)
  - Diabetic ketoacidosis [Fatal]
